FAERS Safety Report 8378761-9 (Version None)
Quarter: 2012Q2

REPORT INFORMATION
  Report Type: 
  Country: None (occurrence: None)
  Receive Date: 20120522
  Receipt Date: 20120515
  Transmission Date: 20120825
  Serious: Yes (Hospitalization)
  Sender: FDA-Public Use
  Company Number: US-TEVA-338346USA

PATIENT
  Sex: Female
  Weight: 118 kg

DRUGS (16)
  1. FUROSEMIDE [Concomitant]
     Dates: start: 20110101
  2. CARVEDILOL [Concomitant]
     Dates: start: 20110101
  3. NUCOCHEM PEDIATRIC [Concomitant]
     Dates: start: 20110913
  4. ALPRAZOLAM [Concomitant]
     Dates: start: 20110101
  5. GRANISETRON [Concomitant]
     Dates: start: 20110816
  6. TREANDA [Suspect]
     Indication: MULTIPLE MYELOMA
     Dosage: DAYS 1-2
     Route: 042
     Dates: start: 20110816, end: 20110817
  7. LENALIDOMIDE [Suspect]
     Indication: MULTIPLE MYELOMA
     Dates: start: 20110816
  8. ASPIRIN [Concomitant]
     Dates: start: 20110816
  9. PREGABALIN [Concomitant]
     Dates: start: 20100212
  10. DEXAMETHASONE [Suspect]
     Indication: MULTIPLE MYELOMA
     Dates: start: 20110816
  11. ZOLEDRONOC ACID [Concomitant]
     Dates: start: 20080226
  12. VALSARTAN [Concomitant]
     Dates: start: 20110101
  13. CLONIDINE [Concomitant]
     Dates: start: 20110101
  14. CELECOXIB [Concomitant]
     Dates: start: 20110701
  15. TREANDA [Suspect]
     Route: 042
     Dates: start: 20110920, end: 20120118
  16. AMITRIPTYLINE HCL [Concomitant]
     Dates: start: 20110101

REACTIONS (1)
  - SYNCOPE [None]
